FAERS Safety Report 4681252-X (Version None)
Quarter: 2005Q2

REPORT INFORMATION
  Report Type: 
  Country: None (occurrence: None)
  Receive Date: 20050603
  Receipt Date: 20050429
  Transmission Date: 20051028
  Serious: Yes (Hospitalization)
  Sender: FDA-Public Use
  Company Number: ES-ROCHE-403580

PATIENT
  Age: 45 Year
  Sex: Female
  Weight: 53 kg

DRUGS (5)
  1. RIBAVIRIN [Suspect]
     Route: 048
     Dates: start: 20040513, end: 20050405
  2. RIBAVIRIN [Suspect]
     Route: 048
     Dates: start: 20050406, end: 20050412
  3. PEG-INTERFERON ALFA 2A (RO 25-8310) [Suspect]
     Route: 058
     Dates: start: 20040513, end: 20050412
  4. EBASTEL [Concomitant]
     Dates: start: 20050406
  5. ATARAX [Concomitant]
     Dates: start: 20050406

REACTIONS (1)
  - DERMATITIS EXFOLIATIVE [None]
